FAERS Safety Report 12109936 (Version 1)
Quarter: 2016Q1

REPORT INFORMATION
  Report Type: Spontaneous
  Country: SE (occurrence: SE)
  Receive Date: 20160224
  Receipt Date: 20160224
  Transmission Date: 20160526
  Serious: Yes (Other)
  Sender: FDA-Public Use
  Company Number: SE-PFIZER INC-2016103627

PATIENT
  Age: 70 Year
  Sex: Female

DRUGS (9)
  1. LYRICA [Suspect]
     Active Substance: PREGABALIN
     Indication: PAIN
     Dosage: 25 MG, 1X/DAY
     Dates: start: 20151110
  2. LIPITOR [Concomitant]
     Active Substance: ATORVASTATIN CALCIUM
  3. RAMIPRIL KRKA [Concomitant]
     Active Substance: RAMIPRIL
  4. BISOPROLOL ACTAVIS [Concomitant]
     Active Substance: BISOPROLOL
  5. DUOTRAV [Concomitant]
     Active Substance: TIMOLOL MALEATE\TRAVOPROST
  6. VAGIFEM [Concomitant]
     Active Substance: ESTRADIOL
     Route: 067
  7. NAPROXEN. [Concomitant]
     Active Substance: NAPROXEN
     Dosage: 1 X 2 AS NEEDED, NO MORE THAN ONE WEEK AT A TIME
  8. SIDURO [Concomitant]
  9. VERSATIS [Concomitant]
     Active Substance: LIDOCAINE

REACTIONS (2)
  - Stress cardiomyopathy [Recovered/Resolved]
  - Fatigue [Unknown]
